FAERS Safety Report 15093535 (Version 3)
Quarter: 2018Q3

REPORT INFORMATION
  Report Type: Report from Study
  Country: US (occurrence: US)
  Receive Date: 20180629
  Receipt Date: 20180720
  Transmission Date: 20181010
  Serious: Yes (Hospitalization, Other)
  Sender: FDA-Public Use
  Company Number: PHEH2018US025203

PATIENT
  Sex: Male

DRUGS (1)
  1. ENTRESTO [Suspect]
     Active Substance: SACUBITRIL\VALSARTAN
     Indication: CARDIAC DISORDER
     Dosage: UNK, BID
     Route: 048

REACTIONS (12)
  - Nasopharyngitis [Not Recovered/Not Resolved]
  - Oropharyngeal pain [Unknown]
  - Product use in unapproved indication [Unknown]
  - Swelling [Unknown]
  - Concomitant disease aggravated [Unknown]
  - Dyspepsia [Unknown]
  - Speech disorder [Unknown]
  - Pruritus [Unknown]
  - Renal disorder [Unknown]
  - Malaise [Unknown]
  - Lymphadenopathy [Unknown]
  - Balanoposthitis [Unknown]
